FAERS Safety Report 22055438 (Version 3)
Quarter: 2023Q1

REPORT INFORMATION
  Report Type: Report from Study
  Country: US (occurrence: None)
  Receive Date: 20230302
  Receipt Date: 20230308
  Transmission Date: 20230418
  Serious: Yes (Death)
  Sender: FDA-Public Use
  Company Number: 2023A051430

PATIENT
  Age: 34 Year

DRUGS (6)
  1. SEROQUEL [Interacting]
     Active Substance: QUETIAPINE FUMARATE
     Route: 048
  2. BUPRENORPHINE [Interacting]
     Active Substance: BUPRENORPHINE
  3. GABAPENTIN [Interacting]
     Active Substance: GABAPENTIN
     Dosage: 21 MG/L
  4. LITHIUM [Interacting]
     Active Substance: LITHIUM
  5. LORAZEPAM [Interacting]
     Active Substance: LORAZEPAM
  6. ALPRAZOLAM [Interacting]
     Active Substance: ALPRAZOLAM
     Dosage: 0.0M3 MG/L

REACTIONS (3)
  - Accidental overdose [Fatal]
  - Toxicity to various agents [Fatal]
  - Drug interaction [Fatal]
